FAERS Safety Report 7881028-6 (Version None)
Quarter: 2011Q4

REPORT INFORMATION
  Report Type: 
  Country: None (occurrence: None)
  Receive Date: 20111101
  Receipt Date: 20110602
  Transmission Date: 20120403
  Serious: No
  Sender: FDA-Public Use
  Company Number: US-AMGEN-USASP2011028642

PATIENT
  Age: 59 Year
  Sex: Female
  Weight: 185 kg

DRUGS (6)
  1. PLAQUENIL [Concomitant]
     Dosage: 200 MG, UNK
  2. FOLIC ACID [Concomitant]
     Dosage: 1 MG, UNK
  3. TRAZODONE HYDROCHLORIDE [Concomitant]
     Dosage: 50 MG, UNK
  4. ENBREL [Suspect]
     Indication: PRODUCT USED FOR UNKNOWN INDICATION
     Dosage: 50 MG, QWK
     Route: 058
  5. METHOTREXATE [Concomitant]
     Dosage: 2.5 MG, UNK
  6. FLEXERIL [Concomitant]
     Dosage: 10 MG, UNK

REACTIONS (3)
  - INJECTION SITE SWELLING [None]
  - INJECTION SITE WARMTH [None]
  - INJECTION SITE ERYTHEMA [None]
